FAERS Safety Report 4802873-7 (Version None)
Quarter: 2005Q4

REPORT INFORMATION
  Report Type: 
  Country: None (occurrence: None)
  Receive Date: 20051013
  Receipt Date: 20050927
  Transmission Date: 20060501
  Serious: Yes (Disabling, Other)
  Sender: FDA-Public Use
  Company Number: EWC050945933

PATIENT
  Age: 74 Year
  Sex: Male

DRUGS (5)
  1. TERIPARATIDE [Suspect]
     Indication: OSTEOPOROSIS
     Dosage: 20 UG/1 DAY
     Dates: start: 20050525
  2. TRAMADOL HCL [Concomitant]
  3. ENALAPRIL MALEATE [Concomitant]
  4. CALCIMAGON-D3 [Concomitant]
  5. SERENOA REPENS [Concomitant]

REACTIONS (2)
  - DIZZINESS [None]
  - GAIT DISTURBANCE [None]
